FAERS Safety Report 15803305 (Version 1)
Quarter: 2019Q1

REPORT INFORMATION
  Report Type: Spontaneous
  Country: PL (occurrence: PL)
  Receive Date: 20190109
  Receipt Date: 20190109
  Transmission Date: 20190417
  Serious: Yes (Other)
  Sender: FDA-Public Use
  Company Number: PL-JNJFOC-20181234707

PATIENT
  Sex: Male

DRUGS (10)
  1. ACENOCOUMAROL [Concomitant]
     Active Substance: ACENOCOUMAROL
     Route: 065
     Dates: start: 20181225
  2. KALDYUM [Concomitant]
     Active Substance: POTASSIUM CHLORIDE
     Route: 065
  3. PRESTARIUM [Concomitant]
     Active Substance: PERINDOPRIL
     Route: 065
  4. XARELTO [Suspect]
     Active Substance: RIVAROXABAN
     Indication: ATRIAL FIBRILLATION
     Route: 048
     Dates: start: 20181222, end: 20181223
  5. ATENOLOL. [Concomitant]
     Active Substance: ATENOLOL
     Route: 065
  6. OPACORDEN [Concomitant]
     Active Substance: AMIODARONE HYDROCHLORIDE
     Route: 065
  7. KALDYUM [Concomitant]
     Active Substance: POTASSIUM CHLORIDE
     Route: 065
  8. ATORVASTATIN CALCIUM. [Concomitant]
     Active Substance: ATORVASTATIN CALCIUM
     Route: 065
  9. NOLPAZA [Concomitant]
     Active Substance: PANTOPRAZOLE SODIUM
     Route: 065
  10. POLOCARD [Concomitant]
     Active Substance: ASPIRIN
     Route: 065

REACTIONS (19)
  - Hyperhidrosis [Unknown]
  - Haemoptysis [Recovered/Resolved]
  - Eye pain [Unknown]
  - Ear discomfort [Unknown]
  - Headache [Unknown]
  - Mouth haemorrhage [Recovered/Resolved]
  - Seizure [Unknown]
  - Apathy [Unknown]
  - Contusion [Not Recovered/Not Resolved]
  - Anxiety [Unknown]
  - Feeling abnormal [Unknown]
  - Bone pain [Unknown]
  - Lip swelling [Unknown]
  - Myalgia [Unknown]
  - Auditory disorder [Unknown]
  - Asthenia [Unknown]
  - Arthralgia [Unknown]
  - Pain [Unknown]
  - Tinnitus [Unknown]

NARRATIVE: CASE EVENT DATE: 20181222
